FAERS Safety Report 21454727 (Version 3)
Quarter: 2023Q1

REPORT INFORMATION
  Report Type: Spontaneous
  Country: GB (occurrence: GB)
  Receive Date: 20221014
  Receipt Date: 20230213
  Transmission Date: 20230417
  Serious: Yes (Other)
  Sender: FDA-Public Use
  Company Number: GB-LDELTA-NLLD0038431

PATIENT
  Age: 61 Year
  Sex: Male
  Weight: 75.9 kg

DRUGS (9)
  1. CAPECITABINE [Suspect]
     Active Substance: CAPECITABINE
     Indication: Pancreatic carcinoma
     Dosage: GEMCITABINE/CAPECITABINE COMBINED DOSE : 3600MG IV AND ORAL; ;
     Dates: start: 202208
  2. GEMCITABINE [Suspect]
     Active Substance: GEMCITABINE
     Indication: Pancreatic carcinoma
     Dosage: GEMCITABINE/CAPECITABINE COMBINED DOSE : 3600MG IV AND ORAL; ;
     Dates: start: 202208
  3. CLOZAPINE [Suspect]
     Active Substance: CLOZAPINE
     Indication: Schizophrenia
     Dosage: TAKEN AT 6PM.
     Route: 050
     Dates: start: 20120724
  4. CLOZAPINE [Suspect]
     Active Substance: CLOZAPINE
     Dosage: TAKEN AT 6PM
     Route: 050
     Dates: start: 20220722
  5. CREON [Concomitant]
     Active Substance: PANCRELIPASE AMYLASE\PANCRELIPASE LIPASE\PANCRELIPASE PROTEASE
     Indication: Pancreatic failure
     Route: 050
     Dates: start: 202207
  6. HUMULIN L [Concomitant]
     Active Substance: INSULIN HUMAN
     Indication: Type 2 diabetes mellitus
     Dosage: 24 UNITS + 12 UNITS DAILY; ;
     Route: 050
     Dates: start: 202206
  7. ONDANSETRON [Concomitant]
     Active Substance: ONDANSETRON
     Indication: Product used for unknown indication
     Route: 050
     Dates: start: 202208
  8. VALPROATE SODIUM [Concomitant]
     Active Substance: VALPROATE SODIUM
     Indication: Mood swings
     Route: 050
     Dates: start: 202206
  9. METFORMIN [Concomitant]
     Active Substance: METFORMIN HYDROCHLORIDE
     Indication: Type 2 diabetes mellitus
     Route: 050
     Dates: start: 202110

REACTIONS (13)
  - Adenocarcinoma pancreas [Fatal]
  - Sedation [Not Recovered/Not Resolved]
  - Colitis [Recovering/Resolving]
  - White blood cell count decreased [Recovered/Resolved]
  - Liver function test abnormal [Recovered/Resolved]
  - Platelet count decreased [Recovered/Resolved]
  - Neutrophil count decreased [Recovered/Resolved]
  - Contraindicated product administered [Not Recovered/Not Resolved]
  - Off label use [Not Recovered/Not Resolved]
  - White blood cell count increased [Recovered/Resolved]
  - Neutrophil count increased [Recovered/Resolved]
  - Thrombocytopenia [Not Recovered/Not Resolved]
  - Platelet count increased [Not Recovered/Not Resolved]

NARRATIVE: CASE EVENT DATE: 20220401
